FAERS Safety Report 23098545 (Version 1)
Quarter: 2023Q4

REPORT INFORMATION
  Report Type: Spontaneous
  Country: IT (occurrence: IT)
  Receive Date: 20231023
  Receipt Date: 20231023
  Transmission Date: 20240109
  Serious: Yes (Hospitalization)
  Sender: FDA-Public Use
  Company Number: None

PATIENT
  Age: 88 Year
  Sex: Male

DRUGS (12)
  1. OLMESARTAN MEDOXOMIL [Suspect]
     Active Substance: OLMESARTAN MEDOXOMIL
     Indication: Myocardial ischaemia
     Dosage: 40 MILLIGRAM DAILY; OLMESARTAN MEDOXOMIL 40 MG AT 8:00 AM
     Route: 065
  2. BISOPROLOL [Suspect]
     Active Substance: BISOPROLOL\BISOPROLOL FUMARATE
     Indication: Myocardial ischaemia
     Dosage: 3.75 MILLIGRAM DAILY;  BISOPROLOL 2.5 MG AT 8.00 AM AND 1.25 MG AT 8.00 PM
  3. NORVASC [Suspect]
     Active Substance: AMLODIPINE BESYLATE
     Indication: Myocardial ischaemia
  4. LASIX [Suspect]
     Active Substance: FUROSEMIDE
     Indication: Myocardial ischaemia
  5. CLONIDINE [Suspect]
     Active Substance: CLONIDINE
     Indication: Myocardial ischaemia
     Dosage: CATAPRESAN TTS2 PATCH ONCE A WEEK (CHANGE ON TUESDAY)
  6. CRESTOR [Concomitant]
     Active Substance: ROSUVASTATIN CALCIUM
     Indication: Product used for unknown indication
  7. FENOFIBRATE [Concomitant]
     Active Substance: FENOFIBRATE
     Indication: Product used for unknown indication
  8. PLAVIX [Concomitant]
     Active Substance: CLOPIDOGREL BISULFATE
     Indication: Product used for unknown indication
  9. PANTOPRAZOLE SODIUM [Concomitant]
     Active Substance: PANTOPRAZOLE SODIUM
     Indication: Product used for unknown indication
  10. INSULIN LISPRO [Concomitant]
     Active Substance: INSULIN LISPRO
     Indication: Product used for unknown indication
  11. LANTUS [Concomitant]
     Active Substance: INSULIN GLARGINE
     Indication: Product used for unknown indication
  12. ASPIRIN [Concomitant]
     Active Substance: ASPIRIN
     Indication: Product used for unknown indication

REACTIONS (4)
  - Chest pain [Recovering/Resolving]
  - Hypertensive crisis [Recovering/Resolving]
  - Dyspnoea [Recovering/Resolving]
  - Drug ineffective [Recovering/Resolving]

NARRATIVE: CASE EVENT DATE: 20230417
